FAERS Safety Report 13593380 (Version 1)
Quarter: 2017Q2

REPORT INFORMATION
  Report Type: Spontaneous
  Country: US (occurrence: US)
  Receive Date: 20170530
  Receipt Date: 20170530
  Transmission Date: 20170830
  Serious: Yes (Other)
  Sender: FDA-Public Use
  Company Number: US-SHIRE-US201711359

PATIENT
  Sex: Male

DRUGS (1)
  1. DEXTROAMPHET SACCHARAT, AMPHET ASPARTATE, DEXTROAMPHET SULFATE AND AMPHET SULFAT [Suspect]
     Active Substance: AMPHETAMINE ASPARTATE\AMPHETAMINE SULFATE\DEXTROAMPHETAMINE SACCHARATE\DEXTROAMPHETAMINE SULFATE
     Indication: PRODUCT USED FOR UNKNOWN INDICATION
     Dosage: UNK, UNKNOWN
     Route: 048

REACTIONS (8)
  - Adverse event [Unknown]
  - Product quality issue [Unknown]
  - Eye swelling [Unknown]
  - Mental impairment [Unknown]
  - Metabolic disorder [Unknown]
  - Hyperhidrosis [Unknown]
  - Eye inflammation [Unknown]
  - Palpitations [Unknown]

NARRATIVE: CASE EVENT DATE: 2017
